FAERS Safety Report 26082669 (Version 1)
Quarter: 2025Q4

REPORT INFORMATION
  Report Type: Spontaneous
  Country: US (occurrence: None)
  Receive Date: 20251122
  Receipt Date: 20251122
  Transmission Date: 20260118
  Serious: Yes (Other)
  Sender: FDA-CTU
  Company Number: None

PATIENT
  Age: 58 Year
  Sex: Female

DRUGS (11)
  1. ENBREL [Suspect]
     Active Substance: ETANERCEPT
     Dosage: INJECT 1 MILLILITER BY SUBCUTANEOUS ROUTE EVERY WEEK.? ?
     Route: 058
     Dates: start: 20240829
  2. CALCIUM 600 TAB +D [Concomitant]
  3. CYCLOSPORINE EMU 0.05% OP [Concomitant]
  4. ENBREL MINI INJ 50MG/ML [Concomitant]
  5. HAIR SKIN TAB NAILS [Concomitant]
  6. LEVOTHYROXIN TAB 112MCG [Concomitant]
  7. LOSARTAN POTASSIUM [Concomitant]
     Active Substance: LOSARTAN POTASSIUM
  8. METFORMIN TAB 1000MG [Concomitant]
  9. SALMON OIL CAP 1000MG [Concomitant]
  10. TURMERIC TAB 1053MG [Concomitant]
  11. WOMENS DAILY CHW GUMMIES [Concomitant]

REACTIONS (2)
  - Pulmonary resection [None]
  - Pain [None]

NARRATIVE: CASE EVENT DATE: 20251026
